FAERS Safety Report 25241925 (Version 1)
Quarter: 2025Q2

REPORT INFORMATION
  Report Type: Spontaneous
  Country: BE (occurrence: BE)
  Receive Date: 20250426
  Receipt Date: 20250426
  Transmission Date: 20250717
  Serious: Yes (Other)
  Sender: AUROBINDO
  Company Number: BE-ROCHE-1811629

PATIENT
  Age: 70 Year
  Sex: Female
  Weight: 57.3 kg

DRUGS (6)
  1. PACLITAXEL [Suspect]
     Active Substance: PACLITAXEL
     Indication: Ovarian cancer
     Dosage: 60 MILLIGRAM/SQ. METER, EVERY WEEK
     Route: 042
     Dates: start: 20160719, end: 20160726
  2. PACLITAXEL [Suspect]
     Active Substance: PACLITAXEL
     Dosage: UNK, EVERY WEEK
     Route: 042
  3. CARBOPLATIN [Suspect]
     Active Substance: CARBOPLATIN
     Indication: Ovarian cancer
     Dosage: UNK, EVERY WEEK
     Route: 042
  4. CARBOPLATIN [Suspect]
     Active Substance: CARBOPLATIN
     Dosage: UNK UNK, EVERY WEEK
     Route: 042
     Dates: start: 20160719, end: 20160726
  5. BEVACIZUMAB [Suspect]
     Active Substance: BEVACIZUMAB
     Indication: Ovarian cancer
     Route: 042
     Dates: start: 20160726
  6. BEVACIZUMAB [Suspect]
     Active Substance: BEVACIZUMAB
     Route: 042

REACTIONS (25)
  - Neutropenia [Recovered/Resolved]
  - Constipation [Recovered/Resolved]
  - Tinnitus [Recovered/Resolved]
  - Asthenia [Not Recovered/Not Resolved]
  - Depressed mood [Recovered/Resolved]
  - Visual impairment [Recovered/Resolved]
  - Dry skin [Recovered/Resolved]
  - Rhinorrhoea [Recovered/Resolved]
  - Epistaxis [Recovered/Resolved]
  - Myalgia [Not Recovered/Not Resolved]
  - Anaemia [Not Recovered/Not Resolved]
  - Dysphonia [Not Recovered/Not Resolved]
  - Contusion [Recovered/Resolved]
  - Teeth brittle [Recovered/Resolved]
  - Hyperkeratosis [Recovered/Resolved]
  - Gastrooesophageal reflux disease [Not Recovered/Not Resolved]
  - Musculoskeletal stiffness [Recovered/Resolved]
  - Dizziness [Not Recovered/Not Resolved]
  - Muscle spasms [Recovered/Resolved]
  - Urge incontinence [Not Recovered/Not Resolved]
  - Tachycardia [Not Recovered/Not Resolved]
  - Alopecia [Recovered/Resolved]
  - Decreased appetite [Not Recovered/Not Resolved]
  - Orthostatic hypotension [Not Recovered/Not Resolved]
  - Balance disorder [Not Recovered/Not Resolved]

NARRATIVE: CASE EVENT DATE: 20160719
